FAERS Safety Report 9257584 (Version 3)
Quarter: 2013Q2

REPORT INFORMATION
  Report Type: Spontaneous
  Country: BR (occurrence: BR)
  Receive Date: 20130426
  Receipt Date: 20130510
  Transmission Date: 20140414
  Serious: Yes (Hospitalization)
  Sender: FDA-Public Use
  Company Number: BR-PFIZER INC-2013126391

PATIENT
  Age: 76 Year
  Sex: Female

DRUGS (2)
  1. XALACOM [Suspect]
     Indication: GLAUCOMA
     Dosage: TWO DROPS, ONCE DAILY
     Route: 047
     Dates: start: 2011
  2. LYRICA [Suspect]
     Indication: PAIN
     Dosage: 75 MG (ONE CAPSULE), 1X/DAY
     Route: 048
     Dates: start: 2010

REACTIONS (3)
  - Infarction [Unknown]
  - Gait disturbance [Not Recovered/Not Resolved]
  - Bedridden [Not Recovered/Not Resolved]
